FAERS Safety Report 7359226-X (Version None)
Quarter: 2011Q1

REPORT INFORMATION
  Report Type: 
  Country: None (occurrence: None)
  Receive Date: 20110317
  Receipt Date: 20110304
  Transmission Date: 20110831
  Serious: Yes (Other)
  Sender: FDA-Public Use
  Company Number: PHHY2011US18995

PATIENT
  Sex: Female

DRUGS (10)
  1. SIMVASTATIN [Concomitant]
     Dosage: 10 MG, UNK
  2. CARTIA XT [Concomitant]
     Dosage: 180 MG, UNK
  3. VITAMIN D [Concomitant]
     Dosage: 400 IU, UNK
  4. COUMADIN [Concomitant]
     Dosage: 2.5 MG, UNK
  5. CALCIUM CARBONATE [Concomitant]
     Dosage: 600 MG, UNK
  6. RECLAST [Suspect]
     Dosage: 5 MG/100ML
     Dates: start: 20100816
  7. VITAMIN D [Concomitant]
     Dosage: 40 IU, UNK
  8. ENALAPRIL [Concomitant]
     Dosage: 20 MG, UNK
  9. ASPIRIN [Concomitant]
     Dosage: 81 MG, UNK
  10. RECLAST [Suspect]
     Indication: OSTEOPOROSIS
     Dosage: 5 MG/100ML
     Dates: start: 20090809

REACTIONS (9)
  - GASTROINTESTINAL HAEMORRHAGE [None]
  - DYSPNOEA [None]
  - PAIN IN EXTREMITY [None]
  - PAIN [None]
  - BACK PAIN [None]
  - INFLUENZA LIKE ILLNESS [None]
  - BONE PAIN [None]
  - ARTHRALGIA [None]
  - CHILLS [None]
